FAERS Safety Report 19078163 (Version 6)
Quarter: 2021Q4

REPORT INFORMATION
  Report Type: Report from Study
  Country: DE (occurrence: DE)
  Receive Date: 20210331
  Receipt Date: 20211230
  Transmission Date: 20220304
  Serious: Yes (Hospitalization, Other)
  Sender: FDA-Public Use
  Company Number: NVSC2021DE054811

PATIENT
  Age: 76 Year
  Sex: Female
  Weight: 70 kg

DRUGS (4)
  1. KISQALI [Suspect]
     Active Substance: RIBOCICLIB
     Indication: Hormone receptor positive HER2 negative breast cancer
     Dosage: 600 MG, QD (SCHEMA 21 DAYS INTAKE, 7 DAYS PAUSE)
     Route: 048
     Dates: start: 20200504, end: 20210228
  2. KISQALI [Suspect]
     Active Substance: RIBOCICLIB
     Dosage: 400 MG (SCHEME 21 DAYS INTAKE, 7 DAYS PAUSE)
     Route: 048
     Dates: start: 20210531
  3. LETROZOLE [Suspect]
     Active Substance: LETROZOLE
     Indication: Hormone receptor positive HER2 negative breast cancer
     Dosage: 2.5 MG, QD (SCHEMA 21 DAYS INTAKE, 7 DAYS PAUSE)
     Route: 048
     Dates: start: 20200504
  4. DENOSUMAB [Concomitant]
     Active Substance: DENOSUMAB
     Indication: Product used for unknown indication
     Dosage: 120 MG, Q4W
     Route: 065

REACTIONS (11)
  - Respiratory tract infection [Not Recovered/Not Resolved]
  - Dyspnoea exertional [Not Recovered/Not Resolved]
  - Cough [Unknown]
  - Chest pain [Unknown]
  - Hypertension [Unknown]
  - Wheezing [Unknown]
  - Mucosal disorder [Unknown]
  - Aphthous ulcer [Unknown]
  - Mucosal pain [Unknown]
  - Pneumonitis chemical [Not Recovered/Not Resolved]
  - Dental discomfort [Recovering/Resolving]

NARRATIVE: CASE EVENT DATE: 20201201
